FAERS Safety Report 8183111 (Version 3)
Quarter: 2012Q4

REPORT INFORMATION
  Report Type: Report from Study
  Country: US (occurrence: US)
  Receive Date: 20111017
  Receipt Date: 20121025
  Transmission Date: 20130627
  Serious: Yes (Other)
  Sender: FDA-Public Use
  Company Number: US-UCBSA-8042962

PATIENT
  Age: 32 Year
  Sex: Female

DRUGS (4)
  1. KEPPRA XR [Suspect]
     Indication: EPILEPSY
     Route: 048
     Dates: start: 200810
  2. FOLIC ACID [Concomitant]
     Indication: PREGNANCY
     Route: 048
     Dates: start: 20090114
  3. PRENATAL VITAMIN [Concomitant]
     Indication: PREGNANCY
     Dosage: Dose Freq.: DAILY
     Route: 048
     Dates: start: 20090114
  4. SYNTHROID [Concomitant]
     Indication: THYROIDECTOMY
     Dosage: DOSE FLUCTUATES
     Route: 048
     Dates: start: 20090403

REACTIONS (3)
  - Thyroid cancer [Not Recovered/Not Resolved]
  - Exposure during breast feeding [Unknown]
  - Pregnancy [Recovered/Resolved]
